FAERS Safety Report 5824809-2 (Version None)
Quarter: 2008Q3

REPORT INFORMATION
  Report Type: 
  Country: None (occurrence: None)
  Receive Date: 20080728
  Receipt Date: 20080708
  Transmission Date: 20090109
  Serious: Yes (Other)
  Sender: FDA-Public Use
  Company Number: ES-GILEAD-2008-0017250

PATIENT
  Age: 45 Year
  Sex: Female

DRUGS (4)
  1. VIREAD [Suspect]
     Indication: HIV INFECTION
  2. LAMIVUDINE [Concomitant]
  3. METHADONE HCL [Concomitant]
  4. RISEDRONATE SODIUM [Concomitant]

REACTIONS (3)
  - HYPOPHOSPHATAEMIA [None]
  - METABOLIC ACIDOSIS [None]
  - OSTEOMALACIA [None]
